FAERS Safety Report 9301583 (Version 1)
Quarter: 2013Q2

REPORT INFORMATION
  Report Type: Spontaneous
  Country: US (occurrence: US)
  Receive Date: 20130521
  Receipt Date: 20130521
  Transmission Date: 20140414
  Serious: Yes (Other)
  Sender: FDA-Public Use
  Company Number: US-BIOMARINAP-US-2013-100815

PATIENT
  Age: 31 Year
  Sex: Female
  Weight: 72.56 kg

DRUGS (4)
  1. KUVAN [Suspect]
     Indication: PHENYLKETONURIA
     Dosage: UNK
     Dates: start: 2006
  2. RISPERIDONE [Suspect]
     Indication: SCHIZOPHRENIA
     Dosage: UNK, BID
     Route: 048
     Dates: start: 201202
  3. BENTYL [Concomitant]
     Indication: ABDOMINAL PAIN
     Dosage: 40 MG, PRN
     Dates: start: 201110
  4. ALBUTEROL                          /00139501/ [Concomitant]
     Indication: PRODUCT USED FOR UNKNOWN INDICATION

REACTIONS (2)
  - Dyspnoea [Recovered/Resolved]
  - Loss of consciousness [Recovered/Resolved]
